FAERS Safety Report 6106860-0 (Version None)
Quarter: 2009Q1

REPORT INFORMATION
  Report Type: 
  Country: None (occurrence: None)
  Receive Date: 20090303
  Receipt Date: 20090220
  Transmission Date: 20090719
  Serious: Yes (Hospitalization)
  Sender: FDA-Public Use
  Company Number: GXKR2009AT02287

PATIENT
  Age: 80 Year
  Sex: Male
  Weight: 76 kg

DRUGS (6)
  1. ENALAPRIL MALEATE [Suspect]
  2. ARTHROTEC [Suspect]
  3. FORADIL [Concomitant]
  4. BUDESONIDE [Concomitant]
  5. RESPICUR         (THEOPHYLLINE) AMPOULE [Concomitant]
  6. THROMBO ASS     (ACETYLSALICYLIC ACID) FILM-COATED TABLET [Concomitant]

REACTIONS (3)
  - FALL [None]
  - RENAL FAILURE [None]
  - RHABDOMYOLYSIS [None]
